APPROVED DRUG PRODUCT: HORIZANT
Active Ingredient: GABAPENTIN ENACARBIL
Strength: 300MG
Dosage Form/Route: TABLET, EXTENDED RELEASE;ORAL
Application: N022399 | Product #002
Applicant: AZURITY PHARMACEUTICALS INC
Approved: Dec 13, 2011 | RLD: Yes | RS: No | Type: RX

PATENTS:
Patent 8795725 | Expires: Jun 10, 2029
Patent 8026279 | Expires: Nov 10, 2026
Patent 8114909 | Expires: Apr 11, 2026
Patent 8795725 | Expires: Jun 10, 2029